FAERS Safety Report 9651044 (Version 2)
Quarter: 2014Q1

REPORT INFORMATION
  Report Type: Report from Study
  Country: AR (occurrence: AR)
  Receive Date: 20131029
  Receipt Date: 20140106
  Transmission Date: 20141002
  Serious: No
  Sender: FDA-Public Use
  Company Number: PHHY2013AR121971

PATIENT
  Sex: Male

DRUGS (1)
  1. DIOVAN [Suspect]
     Indication: ACUTE MYOCARDIAL INFARCTION
     Dosage: 160 MG, DAILY
     Route: 048
     Dates: start: 2013

REACTIONS (1)
  - Blood pressure decreased [Unknown]
